FAERS Safety Report 11496213 (Version 1)
Quarter: 2015Q3

REPORT INFORMATION
  Report Type: Spontaneous
  Country: US (occurrence: US)
  Receive Date: 20150911
  Receipt Date: 20150911
  Transmission Date: 20151125
  Serious: No
  Sender: FDA-Public Use
  Company Number: CHPA2015US010633

PATIENT
  Age: 80 Year
  Sex: Female

DRUGS (7)
  1. VOLTAREN [Suspect]
     Active Substance: DICLOFENAC SODIUM
     Indication: NECK PAIN
     Dosage: PEA SIZE, ONCE/SINGLE TO BACK
     Route: 061
     Dates: start: 20150908, end: 20150908
  2. TYLENOL [Concomitant]
     Active Substance: ACETAMINOPHEN
     Indication: ANALGESIC THERAPY
     Route: 065
  3. PREMARIN [Concomitant]
     Active Substance: ESTROGENS, CONJUGATED
     Indication: GASTRIC DISORDER
     Route: 048
  4. VOLTAREN [Suspect]
     Active Substance: DICLOFENAC SODIUM
     Indication: BACK PAIN
     Dosage: PEA SIZE, ONCE/SINGLE TO ARM
     Route: 061
  5. VOLTAREN [Suspect]
     Active Substance: DICLOFENAC SODIUM
     Indication: CARPAL TUNNEL SYNDROME
     Dosage: PEA SIZE, UNK TO STOMACH
     Route: 061
     Dates: start: 20150908, end: 20150908
  6. VOLTAREN [Suspect]
     Active Substance: DICLOFENAC SODIUM
     Indication: TENDONITIS
     Dosage: PEA SIZE, BID TO NECK
     Route: 061
     Dates: start: 20150908
  7. VOLTAREN [Suspect]
     Active Substance: DICLOFENAC SODIUM
     Indication: MYALGIA
     Dosage: PEA SIZE, BID TO WRIST
     Route: 061
     Dates: start: 20150906

REACTIONS (7)
  - Inappropriate schedule of drug administration [Unknown]
  - Back pain [Recovered/Resolved]
  - Myalgia [Recovered/Resolved]
  - Wrong technique in product usage process [Unknown]
  - Therapeutic response unexpected [Unknown]
  - Product use issue [Unknown]
  - Drug administered at inappropriate site [Unknown]

NARRATIVE: CASE EVENT DATE: 20150906
